FAERS Safety Report 13401276 (Version 1)
Quarter: 2017Q2

REPORT INFORMATION
  Report Type: Spontaneous
  Country: US (occurrence: US)
  Receive Date: 20170404
  Receipt Date: 20170404
  Transmission Date: 20170830
  Serious: No
  Sender: FDA-Public Use
  Company Number: US-009507513-1704USA000541

PATIENT
  Age: 28 Year
  Sex: Female
  Weight: 95.24 kg

DRUGS (3)
  1. IMPLANON [Suspect]
     Active Substance: ETONOGESTREL
     Indication: CONTRACEPTION
     Dosage: UNK
     Route: 059
     Dates: start: 2012, end: 20150806
  2. NEXPLANON [Suspect]
     Active Substance: ETONOGESTREL
     Indication: CONTRACEPTION
     Dosage: 1 DF, UNK
     Route: 059
     Dates: start: 20150806
  3. IMPLANON [Suspect]
     Active Substance: ETONOGESTREL
     Dosage: UNK
     Route: 059
     Dates: end: 2012

REACTIONS (9)
  - Menstruation irregular [Unknown]
  - Device difficult to use [Not Recovered/Not Resolved]
  - Vertigo [Unknown]
  - Complication associated with device [Not Recovered/Not Resolved]
  - Complication of device removal [Unknown]
  - Dizziness [Unknown]
  - Motion sickness [Unknown]
  - Neuralgia [Unknown]
  - Migration of implanted drug [Not Recovered/Not Resolved]

NARRATIVE: CASE EVENT DATE: 2015
